FAERS Safety Report 19371393 (Version 1)
Quarter: 2021Q2

REPORT INFORMATION
  Report Type: Spontaneous
  Country: AT (occurrence: AT)
  Receive Date: 20210603
  Receipt Date: 20210603
  Transmission Date: 20210717
  Serious: Yes (Other)
  Sender: FDA-Public Use
  Company Number: AT-TOLMAR, INC.-21AT027629

PATIENT
  Age: 6 Decade
  Sex: Male

DRUGS (1)
  1. ELIGARD [Suspect]
     Active Substance: LEUPROLIDE ACETATE
     Indication: PROSTATE CANCER
     Route: 065

REACTIONS (6)
  - Ureteric compression [Unknown]
  - Metastases to spine [Unknown]
  - Metastases to lymph nodes [Unknown]
  - Metastases to bone [Unknown]
  - Hydronephrosis [Unknown]
  - Metastases to liver [Unknown]

NARRATIVE: CASE EVENT DATE: 201812
